FAERS Safety Report 23775062 (Version 1)
Quarter: 2024Q2

REPORT INFORMATION
  Report Type: Spontaneous
  Country: US (occurrence: None)
  Receive Date: 20240423
  Receipt Date: 20240423
  Transmission Date: 20240716
  Serious: Yes (Hospitalization)
  Sender: FDA-Public Use
  Company Number: None

PATIENT
  Age: 55 Year
  Sex: Male
  Weight: 220 kg

DRUGS (1)
  1. SULFUR HEXAFLUORIDE [Suspect]
     Active Substance: SULFUR HEXAFLUORIDE
     Indication: Angiogram
     Dosage: FREQUENCY : ONCE;?
     Route: 042
     Dates: start: 20230627, end: 20230627

REACTIONS (6)
  - Agitation [None]
  - Anaphylactic reaction [None]
  - Angioedema [None]
  - Hypotension [None]
  - Pruritus [None]
  - Respiratory depression [None]

NARRATIVE: CASE EVENT DATE: 20230627
